FAERS Safety Report 9254948 (Version 9)
Quarter: 2014Q2

REPORT INFORMATION
  Report Type: Spontaneous
  Country: US (occurrence: US)
  Receive Date: 20130425
  Receipt Date: 20140425
  Transmission Date: 20141212
  Serious: Yes (Hospitalization, Other)
  Sender: FDA-Public Use
  Company Number: US-MERCK-1304USA013413

PATIENT
  Sex: Female
  Weight: 74.83 kg

DRUGS (5)
  1. FOSAMAX [Suspect]
     Indication: OSTEOPOROSIS
     Dosage: 70 MG, QW
     Route: 048
     Dates: start: 20011017
  2. FOSAMAX [Suspect]
     Dosage: 70 MG, UNK
     Route: 048
     Dates: start: 20050329, end: 20060207
  3. FOSAMAX [Suspect]
     Dosage: 70 MG, UNK
     Route: 048
     Dates: start: 20060605, end: 20071227
  4. FOSAMAX [Suspect]
     Dosage: 70 MG, UNK
     Route: 048
     Dates: start: 20080410
  5. ALENDRONATE SODIUM [Suspect]
     Indication: OSTEOPOROSIS
     Dosage: 70 MG, UNK
     Route: 048
     Dates: start: 20060209

REACTIONS (31)
  - Intramedullary rod insertion [Unknown]
  - Medical device removal [Unknown]
  - Bone graft [Unknown]
  - Femur fracture [Unknown]
  - Femur fracture [Recovered/Resolved]
  - Low turnover osteopathy [Unknown]
  - Rib fracture [Recovering/Resolving]
  - Foot fracture [Unknown]
  - Post procedural hypothyroidism [Unknown]
  - Vitamin D deficiency [Unknown]
  - Pathological fracture [Unknown]
  - Bursitis [Not Recovered/Not Resolved]
  - Lipomatosis [Unknown]
  - Device extrusion [Unknown]
  - Bone contusion [Unknown]
  - Fall [Unknown]
  - Depression [Unknown]
  - Fracture nonunion [Unknown]
  - Anxiety [Unknown]
  - Tonsillitis [Unknown]
  - Bone disorder [Unknown]
  - Tonsillectomy [Unknown]
  - Laparoscopy [Unknown]
  - Diverticulum intestinal [Unknown]
  - Hyperlipidaemia [Unknown]
  - Back pain [Not Recovered/Not Resolved]
  - Arthralgia [Not Recovered/Not Resolved]
  - Arthralgia [Not Recovered/Not Resolved]
  - Drug ineffective [Unknown]
  - Arthralgia [Unknown]
  - Arthralgia [Unknown]
